FAERS Safety Report 9331407 (Version 2)
Quarter: 2013Q2

REPORT INFORMATION
  Report Type: Spontaneous
  Country: US (occurrence: US)
  Receive Date: 20130605
  Receipt Date: 20130619
  Transmission Date: 20140414
  Serious: Yes (Life-Threatening, Hospitalization)
  Sender: FDA-Public Use
  Company Number: US-JNJFOC-20130521091

PATIENT
  Age: 76 Year
  Sex: Male

DRUGS (8)
  1. XARELTO [Suspect]
     Indication: DEEP VEIN THROMBOSIS
     Route: 048
     Dates: start: 20130429, end: 201305
  2. XARELTO [Suspect]
     Indication: IMMOBILE
     Route: 048
     Dates: start: 20130429, end: 201305
  3. LIPITOR [Concomitant]
     Route: 065
  4. ACIPHEX [Concomitant]
     Route: 065
  5. LISINOPRIL [Concomitant]
     Route: 065
  6. MOBIC [Concomitant]
     Route: 065
  7. ZYRTEC [Concomitant]
     Route: 065
  8. PRO AIR [Concomitant]
     Route: 065

REACTIONS (2)
  - Pulmonary embolism [Recovered/Resolved]
  - Off label use [Unknown]
